FAERS Safety Report 11517808 (Version 1)
Quarter: 2015Q3

REPORT INFORMATION
  Report Type: Spontaneous
  Country: BR (occurrence: BR)
  Receive Date: 20150917
  Receipt Date: 20150917
  Transmission Date: 20151125
  Serious: Yes (Other)
  Sender: FDA-Public Use
  Company Number: BR-PFIZER INC-2015310129

PATIENT
  Age: 55 Year
  Sex: Female
  Weight: 86 kg

DRUGS (7)
  1. EFFEXOR XR [Suspect]
     Active Substance: VENLAFAXINE HYDROCHLORIDE
     Indication: DEPRESSION
     Dosage: STRENGTH 150MG, 1 CAPSULE/DAY
     Route: 048
  2. AZULFIDINE [Concomitant]
     Active Substance: SULFASALAZINE
     Indication: COLITIS
     Dosage: 4 TABLETS/DAY
     Dates: start: 2014
  3. SPIRONOLACTONE. [Concomitant]
     Active Substance: SPIRONOLACTONE
     Indication: BLOOD PRESSURE ABNORMAL
     Dosage: 1 TABLET/DAY
     Dates: start: 2011
  4. LONIUM [Concomitant]
     Indication: GASTROINTESTINAL DISORDER
     Dosage: 2 DF, DAILY
     Dates: start: 2014
  5. GABAPENTIN. [Concomitant]
     Active Substance: GABAPENTIN
     Indication: EPILEPSY
  6. GABAPENTIN. [Concomitant]
     Active Substance: GABAPENTIN
     Indication: SPINAL PAIN
     Dosage: 1 TABLET/DAY
     Dates: start: 201506
  7. NAPRIX D [Concomitant]
     Indication: BLOOD PRESSURE ABNORMAL
     Dosage: 1 TABLET/DAY
     Dates: start: 2011

REACTIONS (16)
  - Abasia [Unknown]
  - Heart rate increased [Unknown]
  - Ocular hyperaemia [Unknown]
  - Throat tightness [Unknown]
  - Agitation [Unknown]
  - Blood pressure increased [Unknown]
  - Crying [Unknown]
  - Pyrexia [Unknown]
  - Negative thoughts [Unknown]
  - Asthenia [Unknown]
  - H1N1 influenza [Unknown]
  - Headache [Unknown]
  - Depressed mood [Unknown]
  - Dyspnoea [Unknown]
  - Visual impairment [Unknown]
  - Loss of consciousness [Unknown]
